FAERS Safety Report 23147435 (Version 5)
Quarter: 2024Q1

REPORT INFORMATION
  Report Type: Report from Study
  Country: DK (occurrence: DK)
  Receive Date: 20231106
  Receipt Date: 20240105
  Transmission Date: 20240409
  Serious: Yes (Hospitalization, Other)
  Sender: FDA-Public Use
  Company Number: DK-CELLTRION INC.-2023DK021117

PATIENT

DRUGS (57)
  1. RITUXIMAB [Suspect]
     Active Substance: RITUXIMAB
     Indication: Diffuse large B-cell lymphoma
     Dosage: 44.95 MG, EVERY 3 WEEKS
     Route: 042
     Dates: start: 20230905, end: 20230905
  2. RITUXIMAB [Suspect]
     Active Substance: RITUXIMAB
     Dosage: 700 MG, EVERY 3 WEEKS
     Route: 042
     Dates: start: 20230927, end: 20230927
  3. CYCLOPHOSPHAMIDE [Suspect]
     Active Substance: CYCLOPHOSPHAMIDE
     Indication: Diffuse large B-cell lymphoma
     Dosage: 1500 MG, EVERY 3 WEEKS
     Route: 042
     Dates: start: 20230904, end: 20230927
  4. DOXORUBICIN [Suspect]
     Active Substance: DOXORUBICIN
     Indication: Diffuse large B-cell lymphoma
     Dosage: 100 MG, EVERY 3 WEEKS
     Route: 042
     Dates: start: 20230904, end: 20230927
  5. EPCORITAMAB [Suspect]
     Active Substance: EPCORITAMAB
     Indication: Diffuse large B-cell lymphoma
     Dosage: 0.16 MG PRIMING DOSE C1, D1, TOTAL
     Route: 058
     Dates: start: 20230904, end: 20230904
  6. EPCORITAMAB [Suspect]
     Active Substance: EPCORITAMAB
     Dosage: 0.16 MG, TOTAL
     Route: 058
     Dates: start: 20230918, end: 20230918
  7. EPCORITAMAB [Suspect]
     Active Substance: EPCORITAMAB
     Dosage: 0.16 MG, TOTAL
     Route: 058
     Dates: start: 20230927, end: 20230927
  8. PREDNISONE [Suspect]
     Active Substance: PREDNISONE
     Indication: Diffuse large B-cell lymphoma
     Dosage: 100 MG C1-6, DAY 1-5, EVERY 1 DAY
     Route: 048
     Dates: start: 20230905
  9. VINCRISTINE [Suspect]
     Active Substance: VINCRISTINE
     Indication: Diffuse large B-cell lymphoma
     Dosage: 2 MG, EVERY 3 WEEKS
     Route: 042
     Dates: start: 20230904, end: 20230927
  10. ACETAMINOPHEN [Concomitant]
     Active Substance: ACETAMINOPHEN
     Indication: Chemotherapy side effect prophylaxis
     Dosage: 1000 MG TOTAL
     Route: 065
     Dates: start: 20230918, end: 20230918
  11. ALLOPURINOL [Concomitant]
     Active Substance: ALLOPURINOL
     Indication: Prophylaxis
     Dosage: 300 MG, EVERY 1 DAYS
     Route: 065
     Dates: start: 20230905
  12. AMOXICILLIN\CLAVULANIC ACID [Concomitant]
     Active Substance: AMOXICILLIN\CLAVULANIC ACID
     Indication: Infection prophylaxis
     Dosage: 625 MG 500 + 125, EVERY 8 HOURS
     Route: 065
     Dates: start: 20230909, end: 20230914
  13. ANAKINRA [Concomitant]
     Active Substance: ANAKINRA
     Indication: Cytokine release syndrome
     Dosage: 100 MG, TOTAL
     Route: 065
     Dates: start: 20230905, end: 20230905
  14. APIXABAN [Concomitant]
     Active Substance: APIXABAN
     Indication: Thrombosis prophylaxis
     Dosage: 5 MG, 2/DAYS
     Route: 065
     Dates: start: 20160803, end: 20230915
  15. BETOLVEX [CYANOCOBALAMIN-TANNIN COMPLEX] [Concomitant]
     Indication: Vitamin supplementation
     Dosage: 2 MG, EVERY 1 DAYS
     Route: 065
     Dates: start: 20230904
  16. CETIRIZINE HYDROCHLORIDE [Concomitant]
     Active Substance: CETIRIZINE HYDROCHLORIDE
     Indication: Chemotherapy side effect prophylaxis
     Dosage: 10 MG, TOTAL
     Route: 065
     Dates: start: 20230918, end: 20230918
  17. CLEMASTINE [CLEMASTINE FUMARATE] [Concomitant]
     Indication: Chemotherapy side effect prophylaxis
     Dosage: 1 MG, TOTAL
     Route: 065
     Dates: start: 20230904, end: 20230904
  18. MORPHINE SULFATE [Concomitant]
     Active Substance: MORPHINE SULFATE
     Indication: Lymph node pain
     Dosage: 20 MG EVERY 12 HOURS
     Route: 065
     Dates: start: 20230903, end: 20230913
  19. MORPHINE SULFATE [Concomitant]
     Active Substance: MORPHINE SULFATE
     Dosage: 10 MG, 2/DAYS
     Route: 065
     Dates: start: 20230913, end: 20230914
  20. MORPHINE SULFATE [Concomitant]
     Active Substance: MORPHINE SULFATE
     Dosage: 5 MG, 2/DAYS
     Route: 065
     Dates: start: 20230914, end: 20230917
  21. CYANOCOBALAMIN [Concomitant]
     Active Substance: CYANOCOBALAMIN
     Indication: Vitamin supplementation
     Dosage: 1 MG, 2/DAYS
     Route: 065
     Dates: start: 20220322
  22. DEXAMETHASONE ACETATE [Concomitant]
     Active Substance: DEXAMETHASONE ACETATE
     Indication: Neoplasm malignant
     Dosage: 10 MG, EVERY 12 HOURS
     Route: 065
     Dates: start: 20230905, end: 20230911
  23. DEXAMETHASONE ACETATE [Concomitant]
     Active Substance: DEXAMETHASONE ACETATE
     Dosage: 10 MG, EVERY 24 HOURS
     Route: 065
     Dates: start: 20230912, end: 20230915
  24. DEXAMETHASONE ACETATE [Concomitant]
     Active Substance: DEXAMETHASONE ACETATE
     Dosage: 4 MG, EVERY 24 HOURS
     Route: 065
     Dates: start: 20230916, end: 20230917
  25. DIGOXIN [Concomitant]
     Active Substance: DIGOXIN
     Indication: Atrial fibrillation
     Dosage: 62.5 UG, EVERY 1 DAYS
     Route: 065
     Dates: start: 20230904, end: 20230917
  26. DIGOXIN [Concomitant]
     Active Substance: DIGOXIN
     Dosage: 250 UG, EVERY 24 HOURS
     Route: 065
     Dates: start: 20230917
  27. DOLOPROCT [FLUOCORTOLONE PIVALATE;LIDOCAINE HYDROCHLORIDE] [Concomitant]
     Indication: Haemorrhoids
     Dosage: 1 PLUS 40 MG, 2/DAY
     Route: 065
     Dates: start: 20230912
  28. DOMPERIDONE [Concomitant]
     Active Substance: DOMPERIDONE
     Indication: Prophylaxis of nausea and vomiting
     Dosage: 10 MG, AS NECESSARY
     Route: 065
     Dates: start: 20230904
  29. DOMPERIDONE [Concomitant]
     Active Substance: DOMPERIDONE
     Indication: Nausea
     Dosage: 10 MG, EVERY 8 HOURS
     Route: 065
     Dates: start: 20230915
  30. FLUCONAZOLE [Concomitant]
     Active Substance: FLUCONAZOLE
     Indication: Candida infection
     Dosage: 200 MG, EVERY 1 DAYS
     Route: 065
     Dates: start: 20230926
  31. FRAGMIN [Concomitant]
     Active Substance: DALTEPARIN SODIUM
     Indication: Thrombosis prophylaxis
     Dosage: 15000 IU, EVERY 1 DAYS
     Route: 065
     Dates: start: 20230919
  32. FUROSEMIDE [Concomitant]
     Active Substance: FUROSEMIDE
     Indication: Prophylaxis
     Dosage: 40 MG, EVERY 1 DAYS
     Route: 065
     Dates: start: 20230908, end: 20230914
  33. POLYETHYLENE GLYCOL 3350\POTASSIUM CHLORIDE\SODIUM BICARBONATE\SODIUM [Concomitant]
     Active Substance: POLYETHYLENE GLYCOL 3350\POTASSIUM CHLORIDE\SODIUM BICARBONATE\SODIUM CHLORIDE
     Indication: Constipation
     Dosage: 1 SACHET, EVERY 24 HOURS
     Route: 065
     Dates: start: 20230913
  34. ALGELDRATE\SODIUM ALGINATE [Concomitant]
     Active Substance: ALGELDRATE\SODIUM ALGINATE
     Indication: Antacid therapy
     Dosage: UNK, AS NECESSARY
     Route: 065
     Dates: start: 20230917, end: 20230919
  35. IPRAMOL [IPRATROPIUM BROMIDE;SALBUTAMOL SULFATE] [Concomitant]
     Indication: Prophylaxis against bronchospasm
     Dosage: 1 INHALATION, EVERY 8 HOURS
     Route: 065
     Dates: start: 20230906, end: 20230910
  36. POTASSIUM CHLORIDE [Concomitant]
     Active Substance: POTASSIUM CHLORIDE
     Indication: Mineral supplementation
     Dosage: 750 MG, EVERY 1 DAYS
     Route: 065
     Dates: start: 20230908, end: 20230914
  37. GRAMICIDIN\NEOMYCIN SULFATE\NYSTATIN\TRIAMCINOLONE ACETONIDE [Concomitant]
     Active Substance: GRAMICIDIN\NEOMYCIN SULFATE\NYSTATIN\TRIAMCINOLONE ACETONIDE
     Indication: Candida infection
     Dosage: 5 ML, EVERY 8 HRS
     Route: 065
     Dates: start: 20230926
  38. POLYETHYLENE GLYCOL 3350\POTASSIUM CHLORIDE\SODIUM BICARBONATE\SODIUM [Concomitant]
     Active Substance: POLYETHYLENE GLYCOL 3350\POTASSIUM CHLORIDE\SODIUM BICARBONATE\SODIUM CHLORIDE
     Indication: Constipation
     Dosage: 1 SACHET, EVERY 24 HOURS
     Route: 065
     Dates: start: 20230913
  39. MAGNESIUMHYDROXIDE [Concomitant]
     Indication: Constipation prophylaxis
     Dosage: 500 MG, AS NECESSARY
     Route: 065
     Dates: start: 20230903
  40. METOPROLOL SUCCINATE [Concomitant]
     Active Substance: METOPROLOL SUCCINATE
     Indication: Atrial fibrillation
     Dosage: 25 MG, EVERY 24 HOURS
     Route: 065
     Dates: start: 20230913
  41. MORPHINE SULFATE [Concomitant]
     Active Substance: MORPHINE SULFATE
     Indication: Lymph node pain
     Dosage: 10 MG, AS NECESSARY
     Route: 065
     Dates: start: 20230904, end: 20230919
  42. NOVORAPID [Concomitant]
     Active Substance: INSULIN ASPART
     Indication: Prophylaxis
     Dosage: 0-10, 5/DAYS
     Route: 065
     Dates: start: 20230905, end: 20230919
  43. NYSTATINA [Concomitant]
     Indication: Candida infection
     Dosage: 5 ML, EVERY 8 HOURS
     Route: 065
     Dates: start: 20230926
  44. ONDANSETRON [Concomitant]
     Active Substance: ONDANSETRON
     Indication: Nausea
     Dosage: 8 MG, 2/DAYS
     Route: 065
     Dates: start: 20230919
  45. PANTOPRAZOLE SODIUM [Concomitant]
     Active Substance: PANTOPRAZOLE SODIUM
     Indication: Antacid therapy
     Dosage: 40 MG, EVERY 1 DAYS
     Route: 065
     Dates: start: 20230831
  46. PEGFILGRASTIM [Concomitant]
     Active Substance: PEGFILGRASTIM
     Indication: Prophylaxis
     Dosage: 6 MG, TOTAL
     Route: 065
     Dates: start: 20230906, end: 20230906
  47. PIPERACILLIN SODIUM\TAZOBACTAM SODIUM [Concomitant]
     Active Substance: PIPERACILLIN SODIUM\TAZOBACTAM SODIUM
     Indication: Infection prophylaxis
     Dosage: 4 G, EVERY 8 HOURS
     Route: 065
     Dates: start: 20230906, end: 20230909
  48. PROCTOSEDYL [Concomitant]
     Active Substance: DIBUCAINE HYDROCHLORIDE\HYDROCORTISONE
     Indication: Haemorrhoids
     Dosage: UNK, EVERY 8 HOURS
     Route: 065
     Dates: start: 20230914
  49. RAMIPRIN [Concomitant]
     Indication: Prophylaxis
     Dosage: 5 MG, 2/DAYS
     Route: 065
     Dates: start: 20160913
  50. RAMIPRIN [Concomitant]
     Indication: Atrial fibrillation
  51. LORAZEPAM [Concomitant]
     Active Substance: LORAZEPAM
     Indication: Nausea
     Dosage: 1 MG, AS NECESSARY
     Route: 065
     Dates: start: 20230925
  52. UNIKALK FORTE [Concomitant]
     Indication: Mineral supplementation
     Dosage: 400 MG, EVERY 1 DAYS
     Route: 065
     Dates: start: 20230904
  53. ZOPICLONE [Concomitant]
     Active Substance: ZOPICLONE
     Indication: Insomnia
     Dosage: 7.5 MG, EVERY 1 DAYS
     Route: 065
     Dates: start: 20230906, end: 20230919
  54. ZOPICLONE [Concomitant]
     Active Substance: ZOPICLONE
     Indication: Insomnia
     Dosage: 7.5 MG, EVERY 1 DAYS
     Route: 065
     Dates: start: 20230906, end: 20230919
  55. ISOTONIC GLUCOSE [Concomitant]
     Indication: Dehydration
     Dosage: 1000 ML, TOTAL
     Route: 065
     Dates: start: 20230926, end: 20230926
  56. APREPITANT [Concomitant]
     Active Substance: APREPITANT
     Indication: Nausea
     Dosage: 80 MG DAY 1: 125 DAY 2 AND 3: 80, EVERY 1 DAYS
     Route: 065
     Dates: start: 20230925, end: 20230927
  57. LORAZEPAM [Concomitant]
     Active Substance: LORAZEPAM
     Indication: Nausea
     Dosage: 1 MG, AS NECESSARY
     Route: 065
     Dates: start: 20230925

REACTIONS (2)
  - Dehydration [Recovered/Resolved]
  - Dehydration [Not Recovered/Not Resolved]

NARRATIVE: CASE EVENT DATE: 20230925
